FAERS Safety Report 4458531-4 (Version None)
Quarter: 2004Q3

REPORT INFORMATION
  Report Type: 
  Country: None (occurrence: None)
  Receive Date: 20040922
  Receipt Date: 20031119
  Transmission Date: 20050211
  Serious: Yes (Hospitalization)
  Sender: FDA-Public Use
  Company Number: US-SHR-03-011112

PATIENT
  Age: 42 Year
  Sex: Female
  Weight: 55.8 kg

DRUGS (7)
  1. BETASERON [Suspect]
     Indication: MULTIPLE SCLEROSIS
     Dosage: 8 MIU, EVERY 2D, SUBCUTANEOUS
     Route: 058
     Dates: start: 20020312, end: 20030706
  2. MS CONTNI (MORPHINE SULFATE) [Concomitant]
  3. MORPHINE SULFATE [Concomitant]
  4. DILANTIN [Concomitant]
  5. OXYCONTIN [Concomitant]
  6. SOMA [Concomitant]
  7. VALIUM [Concomitant]

REACTIONS (5)
  - DRUG ABUSER [None]
  - FALL [None]
  - INJURY [None]
  - THERMAL BURN [None]
  - URINARY TRACT INFECTION [None]
